FAERS Safety Report 4633942-2 (Version None)
Quarter: 2005Q2

REPORT INFORMATION
  Report Type: 
  Country: None (occurrence: None)
  Receive Date: 20050407
  Receipt Date: 20050325
  Transmission Date: 20051028
  Serious: Yes (Hospitalization, Disabling)
  Sender: FDA-Public Use
  Company Number: 05P-167-0295302-00

PATIENT
  Age: 66 Year
  Sex: Female

DRUGS (5)
  1. VALPROATE SODIUM [Suspect]
     Indication: AFFECTIVE DISORDER
     Dosage: 200 MG, 2 IN 1 D, ORAL
     Route: 048
     Dates: start: 20050216, end: 20050302
  2. HALOPERIDOL [Concomitant]
  3. PROCYCLIDINE HYDROCHLORIDE 2MG TAB [Concomitant]
     Indication: MUSCLE RIGIDITY
  4. ACETYL SALICYLIC ACID USP BAT [Concomitant]
  5. VENLAFAXINE HCL [Concomitant]

REACTIONS (4)
  - INSOMNIA [None]
  - MENTAL DISORDER [None]
  - MUSCLE TWITCHING [None]
  - SOLILOQUY [None]
